FAERS Safety Report 22537266 (Version 5)
Quarter: 2024Q4

REPORT INFORMATION
  Report Type: Spontaneous
  Country: US (occurrence: US)
  Receive Date: 20230608
  Receipt Date: 20241219
  Transmission Date: 20250115
  Serious: No
  Sender: VERTEX
  Company Number: US-VERTEX PHARMACEUTICALS-2023-008036

PATIENT

DRUGS (1)
  1. ORKAMBI [Suspect]
     Active Substance: IVACAFTOR\LUMACAFTOR
     Indication: Cystic fibrosis
     Dosage: LUMACAFTOR/IVACAFTOR TABLETS
     Route: 048

REACTIONS (8)
  - Alcoholic hangover [Unknown]
  - Brain fog [Recovered/Resolved]
  - Anxiety [Recovered/Resolved]
  - Feeling abnormal [Unknown]
  - Dehydration [Unknown]
  - Muscle spasms [Unknown]
  - Lethargy [Unknown]
  - Liver function test abnormal [Unknown]
